FAERS Safety Report 5286601-X (Version None)
Quarter: 2007Q2

REPORT INFORMATION
  Report Type: 
  Country: None (occurrence: None)
  Receive Date: 20070404
  Receipt Date: 20070330
  Transmission Date: 20071010
  Serious: Yes (Hospitalization)
  Sender: FDA-Public Use
  Company Number: US-GLAXOSMITHKLINE-A0643800A

PATIENT
  Age: 30 Year
  Sex: Male
  Weight: 76 kg

DRUGS (4)
  1. EPZICOM [Suspect]
     Indication: DRUG USE FOR UNKNOWN INDICATION
     Dosage: 1TAB PER DAY
     Route: 048
     Dates: start: 20061126, end: 20070310
  2. REYATAZ [Suspect]
     Indication: HIV INFECTION
     Dosage: 400MG PER DAY
     Route: 048
     Dates: start: 20061126, end: 20070310
  3. TYLENOL [Suspect]
  4. ALCOHOLIC BEVERAGE [Suspect]

REACTIONS (17)
  - ABDOMINAL PAIN [None]
  - ALANINE AMINOTRANSFERASE INCREASED [None]
  - ALCOHOLISM [None]
  - ANOREXIA [None]
  - ARTHRALGIA [None]
  - ASPARTATE AMINOTRANSFERASE INCREASED [None]
  - BLOOD BILIRUBIN INCREASED [None]
  - CHEST PAIN [None]
  - CHROMATURIA [None]
  - CONSTIPATION [None]
  - DIARRHOEA [None]
  - DRUG ABUSER [None]
  - DYSPNOEA EXERTIONAL [None]
  - HEPATITIS [None]
  - JAUNDICE [None]
  - MALAISE [None]
  - VOMITING [None]
